FAERS Safety Report 21556637 (Version 2)
Quarter: 2022Q4

REPORT INFORMATION
  Report Type: Report from Study
  Country: BR (occurrence: BR)
  Receive Date: 20221104
  Receipt Date: 20221112
  Transmission Date: 20230113
  Serious: Yes (Hospitalization, Other)
  Sender: FDA-Public Use
  Company Number: BR-AMGEN-BRASL2022057484

PATIENT
  Age: 57 Year
  Sex: Female

DRUGS (16)
  1. VECTIBIX [Suspect]
     Active Substance: PANITUMUMAB
     Indication: Colorectal cancer
     Dosage: UNK, EVERY 15 DAYS
     Route: 042
     Dates: start: 20210611
  2. VECTIBIX [Suspect]
     Active Substance: PANITUMUMAB
     Dosage: UNK, EVERY 15 DAYS
     Route: 042
     Dates: start: 20220328
  3. PANTOPRAZOLE [Concomitant]
     Active Substance: PANTOPRAZOLE
     Indication: Product used for unknown indication
     Dosage: 40 MILLIGRAM ON AN EMPTY STOMACH
     Route: 065
  4. VONAL [Concomitant]
     Indication: Vomiting
     Dosage: 8 MILLILITER IN 8/8H
     Route: 065
  5. VONAL [Concomitant]
     Indication: Nausea
  6. FOLIC ACID [Concomitant]
     Active Substance: FOLIC ACID
     Indication: Product used for unknown indication
     Dosage: UNK  BEFORE LUNCH AND AFTER DINNER
     Route: 065
  7. URSODIOL [Concomitant]
     Active Substance: URSODIOL
     Dosage: 300 MILLIGRAM, Q8H
     Route: 065
  8. VITAMIN E [Concomitant]
     Active Substance: .ALPHA.-TOCOPHEROL
     Indication: Oral pain
     Route: 065
  9. DOXYCYCLINE [Concomitant]
     Active Substance: DOXYCYCLINE
     Indication: Illness
     Dosage: 100 MILLIGRAM
     Route: 065
  10. BUTYLSCOPOLAMINE BROMIDE [Concomitant]
     Active Substance: BUTYLSCOPOLAMINE BROMIDE
     Indication: Pain
     Dosage: 10 MILLIGRAM
     Route: 065
  11. DIPYRONE [Concomitant]
     Active Substance: DIPYRONE
     Indication: Pain
     Dosage: 250 MILLIGRAM
     Route: 065
  12. DIMETHICONE [Concomitant]
     Active Substance: DIMETHICONE
     Indication: Flatulence
     Dosage: 75 MILLIGRAM
     Route: 065
  13. Ferro [Concomitant]
     Indication: Anaemia
     Route: 065
  14. ONDANSETRON HYDROCHLORIDE [Concomitant]
     Active Substance: ONDANSETRON HYDROCHLORIDE
     Indication: Anxiety
     Route: 065
  15. LOPERAMIDE [Concomitant]
     Active Substance: LOPERAMIDE
     Route: 065
  16. VITAMIN E [Concomitant]
     Active Substance: .ALPHA.-TOCOPHEROL
     Route: 065

REACTIONS (24)
  - Anaemia [Recovering/Resolving]
  - White blood cell count decreased [Recovering/Resolving]
  - Diarrhoea haemorrhagic [Recovering/Resolving]
  - Adverse event [Recovering/Resolving]
  - Decreased immune responsiveness [Recovering/Resolving]
  - Colostomy [Recovering/Resolving]
  - Hysterectomy [Recovering/Resolving]
  - Renal surgery [Recovering/Resolving]
  - Bladder operation [Recovering/Resolving]
  - Mouth ulceration [Not Recovered/Not Resolved]
  - Fatigue [Not Recovered/Not Resolved]
  - Abdominal pain [Recovering/Resolving]
  - Nausea [Recovering/Resolving]
  - Diarrhoea [Recovering/Resolving]
  - Erythema [Recovering/Resolving]
  - Rash [Unknown]
  - Pruritus [Recovering/Resolving]
  - Skin fissures [Recovering/Resolving]
  - Aphthous ulcer [Recovering/Resolving]
  - Nail injury [Recovering/Resolving]
  - Mobility decreased [Recovering/Resolving]
  - Traumatic haematoma [Recovering/Resolving]
  - Mouth injury [Recovering/Resolving]
  - Skin mass [Recovering/Resolving]

NARRATIVE: CASE EVENT DATE: 20220101
